FAERS Safety Report 21822979 (Version 4)
Quarter: 2023Q1

REPORT INFORMATION
  Report Type: Report from Study
  Country: US (occurrence: None)
  Receive Date: 20230105
  Receipt Date: 20230217
  Transmission Date: 20230418
  Serious: Yes (Hospitalization)
  Sender: FDA-Public Use
  Company Number: US-Eisai Medical Research-EC-2022-131158

PATIENT
  Age: 76 Year
  Sex: Female

DRUGS (16)
  1. LENVATINIB [Suspect]
     Active Substance: LENVATINIB
     Indication: Endometrial cancer
     Dosage: TOTAL DAILY DOSE: 14 MG (ALSO REPORTED AS 16 MG)
     Route: 048
     Dates: start: 20221031, end: 2022
  2. LENVATINIB [Suspect]
     Active Substance: LENVATINIB
     Dosage: TOTAL DAILY DOSE: 14 MG (ALSO REPORTED AS 16 MG)
     Route: 048
     Dates: start: 2022, end: 20221226
  3. PEMBROLIZUMAB [Suspect]
     Active Substance: PEMBROLIZUMAB
     Indication: Endometrial cancer
     Route: 041
     Dates: start: 20221114, end: 20221114
  4. TAXOL [Suspect]
     Active Substance: PACLITAXEL
     Indication: Endometrial cancer
     Route: 065
     Dates: start: 20221031, end: 20221219
  5. FUROSEMIDE [Concomitant]
     Active Substance: FUROSEMIDE
     Dates: start: 20140814
  6. IBUPROFEN [Concomitant]
     Active Substance: IBUPROFEN
     Dates: start: 2013
  7. VITAMINS [Concomitant]
     Active Substance: VITAMINS
     Dates: start: 20121003
  8. IMS POTASIUM CHLORIDE [Concomitant]
     Dates: start: 20140508
  9. AMLODIPINE [Concomitant]
     Active Substance: AMLODIPINE BESYLATE
     Dates: start: 20221025
  10. HYDROCHLOROTHIAZIDE\LOSARTAN [Concomitant]
     Active Substance: HYDROCHLOROTHIAZIDE\LOSARTAN
     Dates: start: 20131031
  11. DEXAMETHASONE [Concomitant]
     Active Substance: DEXAMETHASONE
     Dates: start: 20221031
  12. LEVOTHYROXINE [Concomitant]
     Active Substance: LEVOTHYROXINE
     Dates: start: 20221205
  13. METRONIDAZOLE BENZOATE [Concomitant]
     Active Substance: METRONIDAZOLE BENZOATE
     Dates: start: 20221205
  14. CIPROFLOXACIN [Concomitant]
     Active Substance: CIPROFLOXACIN
     Dates: start: 20221205
  15. PREDNISONE [Concomitant]
     Active Substance: PREDNISONE
     Dates: start: 20221212
  16. MAGNESIUM SULFATE [Concomitant]
     Active Substance: MAGNESIUM SULFATE
     Dates: start: 20221212, end: 20221212

REACTIONS (2)
  - Pneumonitis [Not Recovered/Not Resolved]
  - Pulmonary embolism [Recovering/Resolving]

NARRATIVE: CASE EVENT DATE: 20221227
